FAERS Safety Report 4673229-5 (Version None)
Quarter: 2005Q2

REPORT INFORMATION
  Report Type: 
  Country: None (occurrence: None)
  Receive Date: 20050523
  Receipt Date: 20050523
  Transmission Date: 20051028
  Serious: Yes (Disabling)
  Sender: FDA-Public Use
  Company Number: None

PATIENT
  Age: 66 Year
  Sex: Male
  Weight: 111.6 kg

DRUGS (4)
  1. ZYVOX [Suspect]
     Indication: ENTEROCOCCAL INFECTION
     Dosage: 600 MG IV Q 12 H
     Route: 042
     Dates: start: 20050128, end: 20050324
  2. ZYVOX [Suspect]
     Indication: STAPHYLOCOCCAL INFECTION
     Dosage: 600 MG IV Q 12 H
     Route: 042
     Dates: start: 20050128, end: 20050324
  3. PAXIL [Suspect]
     Indication: DEPRESSION
     Dosage: 25 QD
     Dates: start: 20050317, end: 20050322
  4. MARINOL [Suspect]
     Indication: ANOREXIA
     Dosage: 25 DC BID
     Dates: start: 20050221, end: 20050322

REACTIONS (6)
  - AGITATION [None]
  - DIARRHOEA [None]
  - HYPERTENSION [None]
  - MYDRIASIS [None]
  - SEROTONIN SYNDROME [None]
  - TREMOR [None]
